FAERS Safety Report 6719879-3 (Version None)
Quarter: 2010Q2

REPORT INFORMATION
  Report Type: 
  Country: None (occurrence: None)
  Receive Date: 20100511
  Receipt Date: 20100430
  Transmission Date: 20101027
  Serious: Yes (Other)
  Sender: FDA-Public Use
  Company Number: US-AMGEN-KDL406248

PATIENT
  Sex: Male
  Weight: 74 kg

DRUGS (4)
  1. PROCRIT [Suspect]
     Indication: MYELODYSPLASTIC SYNDROME
     Route: 058
     Dates: start: 20090706
  2. PREDNISONE [Concomitant]
  3. DANOCRINE [Concomitant]
  4. FOLIC ACID [Concomitant]

REACTIONS (3)
  - APLASIA PURE RED CELL [None]
  - HAEMOGLOBIN DECREASED [None]
  - THERAPEUTIC RESPONSE DECREASED [None]
